FAERS Safety Report 21974888 (Version 2)
Quarter: 2023Q1

REPORT INFORMATION
  Report Type: Report from Study
  Country: RO (occurrence: RO)
  Receive Date: 20230209
  Receipt Date: 20230222
  Transmission Date: 20230418
  Serious: Yes (Hospitalization)
  Sender: FDA-Public Use
  Company Number: RO-002147023-NVSC2023RO024816

PATIENT

DRUGS (7)
  1. RUXOLITINIB [Suspect]
     Active Substance: RUXOLITINIB
     Indication: Primary myelofibrosis
     Dosage: 5 MG
     Route: 065
  2. RUXOLITINIB [Suspect]
     Active Substance: RUXOLITINIB
     Dosage: 10 MG
     Route: 065
  3. RUXOLITINIB [Suspect]
     Active Substance: RUXOLITINIB
     Dosage: 20 MG (10+10 MG, 1 IN THE MORNING ,1 IN THE EVENING)
     Route: 065
     Dates: start: 202208, end: 202209
  4. RUXOLITINIB [Suspect]
     Active Substance: RUXOLITINIB
     Dosage: 20 MG (1 IN THE MORNING, 1 IN THE EVENING)
     Route: 048
     Dates: end: 20230116
  5. TAROSIN [Concomitant]
     Indication: Primary myelofibrosis
     Dosage: UNK, TID (3X /DAY), (IN THE MORNING, NOON AND EVENING)
     Route: 065
  6. MAGNESIUM ASPARTATE\POTASSIUM ASPARTATE [Concomitant]
     Active Substance: MAGNESIUM ASPARTATE\POTASSIUM ASPARTATE
     Indication: Primary myelofibrosis
     Dosage: UNK, TID (3X /DAY), (IN THE MORNING, NOON AND EVENING)
     Route: 065
  7. CALCIUM LACTATE [Concomitant]
     Active Substance: CALCIUM LACTATE
     Indication: Primary myelofibrosis
     Dosage: UNK, TID (3X /DAY),  (IN THE MORNING, NOON AND EVENING)
     Route: 065

REACTIONS (8)
  - White blood cell count decreased [Not Recovered/Not Resolved]
  - Haemorrhage [Recovered/Resolved]
  - Product dose omission issue [Recovered/Resolved]
  - Ill-defined disorder [Unknown]
  - Pruritus [Not Recovered/Not Resolved]
  - Epistaxis [Recovered/Resolved]
  - Chills [Recovered/Resolved]
  - Product dose omission issue [Not Recovered/Not Resolved]

NARRATIVE: CASE EVENT DATE: 20221208
